FAERS Safety Report 16256810 (Version 1)
Quarter: 2019Q2

REPORT INFORMATION
  Report Type: Spontaneous
  Country: FR (occurrence: FR)
  Receive Date: 20190430
  Receipt Date: 20190430
  Transmission Date: 20190711
  Serious: Yes (Other)
  Sender: FDA-Public Use
  Company Number: FR-PFIZER INC-2019176021

PATIENT
  Age: 24 Year
  Sex: Male
  Weight: 100 kg

DRUGS (1)
  1. TAHOR [Suspect]
     Active Substance: ATORVASTATIN CALCIUM
     Indication: MYOCARDIAL INFARCTION
     Dosage: 80 MG, 1X/DAY
     Route: 048
     Dates: start: 20190131, end: 20190202

REACTIONS (1)
  - Cell death [Recovering/Resolving]

NARRATIVE: CASE EVENT DATE: 20190202
